FAERS Safety Report 7214975-9 (Version None)
Quarter: 2011Q1

REPORT INFORMATION
  Report Type: 
  Country: None (occurrence: None)
  Receive Date: 20110107
  Receipt Date: 20100617
  Transmission Date: 20110831
  Serious: No
  Sender: FDA-Public Use
  Company Number: A0865736A

PATIENT
  Sex: Female

DRUGS (6)
  1. AMLODIPINE [Concomitant]
  2. ALENDRONATE [Concomitant]
  3. RAMIPRIL [Concomitant]
  4. LOVAZA [Suspect]
     Dosage: 4G TWICE PER DAY
     Route: 048
  5. OXYBUTYNIN [Concomitant]
  6. METOPROLOL [Concomitant]

REACTIONS (1)
  - PRURITUS [None]
